FAERS Safety Report 5458735-8 (Version None)
Quarter: 2007Q3

REPORT INFORMATION
  Report Type: 
  Country: None (occurrence: None)
  Receive Date: 20070919
  Receipt Date: 20070427
  Transmission Date: 20080115
  Serious: No
  Sender: FDA-Public Use
  Company Number: US-ASTRAZENECA-2007UW08280

PATIENT
  Age: 52 Year
  Sex: Female

DRUGS (3)
  1. SEROQUEL [Suspect]
     Indication: ABNORMAL BEHAVIOUR
  2. SEROQUEL [Suspect]
     Indication: AGITATION
  3. SEROQUEL [Suspect]
     Indication: SELF-INJURIOUS IDEATION

REACTIONS (1)
  - LETHARGY [None]
